FAERS Safety Report 17325811 (Version 4)
Quarter: 2022Q4

REPORT INFORMATION
  Report Type: Spontaneous
  Country: US (occurrence: US)
  Receive Date: 20200127
  Receipt Date: 20221026
  Transmission Date: 20230112
  Serious: Yes (Other)
  Sender: FDA-Public Use
  Company Number: US-PFIZER INC-2020036855

PATIENT
  Age: 80 Year
  Sex: Female

DRUGS (1)
  1. XELJANZ XR [Suspect]
     Active Substance: TOFACITINIB CITRATE
     Dosage: 11 MG

REACTIONS (7)
  - Pulmonary fibrosis [Unknown]
  - Pulmonary hypertension [Unknown]
  - Arthritis [Unknown]
  - Tremor [Unknown]
  - COVID-19 [Unknown]
  - Nervousness [Unknown]
  - Feeling abnormal [Unknown]
